FAERS Safety Report 12281954 (Version 1)
Quarter: 2016Q2

REPORT INFORMATION
  Report Type: Spontaneous
  Country: US (occurrence: US)
  Receive Date: 20160419
  Receipt Date: 20160419
  Transmission Date: 20160815
  Serious: Yes (Hospitalization)
  Sender: FDA-Public Use
  Company Number: US-ASTELLAS-2016US014819

PATIENT
  Age: 88 Year
  Sex: Male

DRUGS (1)
  1. XTANDI [Suspect]
     Active Substance: ENZALUTAMIDE
     Indication: PROSTATE CANCER
     Dosage: 80 MG (40 MG X 2 CAPSULES), ONCE DAILY
     Route: 048
     Dates: start: 20151223

REACTIONS (2)
  - Underdose [Unknown]
  - Hospitalisation [Unknown]

NARRATIVE: CASE EVENT DATE: 20151223
